FAERS Safety Report 7019179-0 (Version None)
Quarter: 2010Q3

REPORT INFORMATION
  Report Type: 
  Country: None (occurrence: None)
  Receive Date: 20100928
  Receipt Date: 20100917
  Transmission Date: 20110219
  Serious: Yes (Other)
  Sender: FDA-Public Use
  Company Number: US-AMGEN-QUU431236

PATIENT
  Sex: Female
  Weight: 59 kg

DRUGS (6)
  1. NPLATE [Suspect]
     Indication: IDIOPATHIC THROMBOCYTOPENIC PURPURA
     Route: 058
     Dates: start: 20091104, end: 20100812
  2. RADIATION THERAPY [Concomitant]
     Dates: start: 20100101
  3. ARANESP [Concomitant]
     Route: 058
     Dates: start: 20100414
  4. CORTICOSTEROIDS [Concomitant]
  5. REVLIMID [Concomitant]
     Route: 048
     Dates: start: 20091214
  6. PREDNISONE [Concomitant]
     Route: 048
     Dates: start: 20100702

REACTIONS (20)
  - ABDOMINAL DISTENSION [None]
  - ABDOMINAL PAIN [None]
  - ANAEMIA [None]
  - ATELECTASIS [None]
  - BILIARY DILATATION [None]
  - BIOPSY BONE MARROW ABNORMAL [None]
  - DIVERTICULUM INTESTINAL [None]
  - EXTRAMEDULLARY HAEMOPOIESIS [None]
  - LYMPHADENOPATHY [None]
  - MYELODYSPLASTIC SYNDROME [None]
  - MYELOPROLIFERATIVE DISORDER [None]
  - NEPHROLITHIASIS [None]
  - PLEURAL EFFUSION [None]
  - PYREXIA [None]
  - SCAN ADRENAL GLAND ABNORMAL [None]
  - SPLENIC INFARCTION [None]
  - SPLENOMEGALY [None]
  - THERAPEUTIC RESPONSE DECREASED [None]
  - URTICARIA [None]
  - WEIGHT DECREASED [None]
